FAERS Safety Report 9990517 (Version 1)
Quarter: 2014Q1

REPORT INFORMATION
  Report Type: Spontaneous
  Country: US (occurrence: US)
  Receive Date: 20140310
  Receipt Date: 20140310
  Transmission Date: 20141002
  Serious: No
  Sender: FDA-Public Use
  Company Number: US-PFIZER INC-2014064735

PATIENT
  Sex: Female

DRUGS (2)
  1. LEVOXYL [Suspect]
     Dosage: UNK
  2. SYNTHROID [Suspect]
     Dosage: 12.5 UG, DAILY
     Dates: start: 201302

REACTIONS (1)
  - Alopecia [Unknown]
